FAERS Safety Report 26202816 (Version 1)
Quarter: 2025Q4

REPORT INFORMATION
  Report Type: Report from Study
  Country: CO (occurrence: CO)
  Receive Date: 20251226
  Receipt Date: 20251226
  Transmission Date: 20260118
  Serious: Yes (Other)
  Sender: JOHNSON AND JOHNSON
  Company Number: CO-JNJFOC-20251232450

PATIENT
  Age: 42 Year
  Sex: Female
  Weight: 58 kg

DRUGS (1)
  1. SIMPONI [Suspect]
     Active Substance: GOLIMUMAB
     Indication: Axial spondyloarthritis
     Dosage: LAST ADMINISTRATION DATE: 18-DEC-2025
     Route: 058

REACTIONS (2)
  - Immunosuppression [Unknown]
  - Influenza [Unknown]

NARRATIVE: CASE EVENT DATE: 20251222
